FAERS Safety Report 7640090-6 (Version None)
Quarter: 2011Q3

REPORT INFORMATION
  Report Type: 
  Country: None (occurrence: None)
  Receive Date: 20110727
  Receipt Date: 20110721
  Transmission Date: 20111222
  Serious: Yes (Hospitalization)
  Sender: FDA-Public Use
  Company Number: JP-CEPHALON-2011003624

PATIENT
  Sex: Male

DRUGS (19)
  1. RITUXIMAB [Suspect]
     Indication: DIFFUSE LARGE B-CELL LYMPHOMA RECURRENT
     Route: 042
     Dates: start: 20110530, end: 20110530
  2. RITUXIMAB [Suspect]
     Route: 042
     Dates: start: 20110620, end: 20110620
  3. BROTIZOLAM [Concomitant]
  4. LACTATE RINGER [Concomitant]
     Dates: start: 20110628, end: 20110629
  5. RITUXIMAB [Suspect]
     Route: 042
     Dates: start: 20110713, end: 20110713
  6. ACETAMINOPHEN [Concomitant]
     Dates: start: 20110626
  7. SULFAMETHOXAZOLE AND TRIMETHOPRIM [Concomitant]
     Dates: start: 20110624
  8. LEVOFLOXACIN [Concomitant]
     Dates: start: 20110627
  9. BENDAMUSTINE HCL [Suspect]
     Indication: DIFFUSE LARGE B-CELL LYMPHOMA RECURRENT
     Route: 041
     Dates: start: 20110531, end: 20110601
  10. POLYCARBOPHIL CALCIUM [Concomitant]
     Dates: start: 20110609
  11. SULPYRINE [Concomitant]
     Dates: start: 20110628, end: 20110628
  12. VALGANCICLOVIR HYDROCHLORIDE (VALCYTE) [Concomitant]
     Dates: start: 20110630, end: 20110630
  13. BENDAMUSTINE HCL [Suspect]
     Route: 042
     Dates: start: 20110714, end: 20110715
  14. SENNOSIDE [Concomitant]
     Dates: start: 20110606
  15. LENOGRASTIM [Concomitant]
     Dates: start: 20110704, end: 20110705
  16. BENDAMUSTINE HCL [Suspect]
     Route: 041
     Dates: start: 20110621, end: 20110622
  17. FAMOTIDINE [Concomitant]
  18. ALLOPURINOL [Concomitant]
     Dates: start: 20110525
  19. ACYCLOVIR [Concomitant]
     Dates: start: 20110602

REACTIONS (2)
  - NEUTROPENIA [None]
  - CYTOMEGALOVIRUS INFECTION [None]
